FAERS Safety Report 6854799-5 (Version None)
Quarter: 2010Q3

REPORT INFORMATION
  Report Type: 
  Country: None (occurrence: None)
  Receive Date: 20100717
  Receipt Date: 20080110
  Transmission Date: 20110219
  Serious: No
  Sender: FDA-Public Use
  Company Number: US-PFIZER INC-2008004662

PATIENT
  Sex: Female
  Weight: 68.181 kg

DRUGS (3)
  1. CHANTIX [Suspect]
     Indication: SMOKING CESSATION THERAPY
     Dates: start: 20080108
  2. TOPAMAX [Concomitant]
     Indication: BIPOLAR DISORDER
  3. KLONOPIN [Concomitant]
     Indication: BIPOLAR DISORDER

REACTIONS (1)
  - GLOSSODYNIA [None]
